FAERS Safety Report 12451692 (Version 2)
Quarter: 2017Q2

REPORT INFORMATION
  Report Type: Spontaneous
  Country: US (occurrence: US)
  Receive Date: 20160609
  Receipt Date: 20170413
  Transmission Date: 20170830
  Serious: No
  Sender: FDA-Public Use
  Company Number: US-ASTELLAS-2016US011757

PATIENT
  Age: 43 Year
  Sex: Male

DRUGS (2)
  1. BASILIXIMAB [Concomitant]
     Active Substance: BASILIXIMAB
     Indication: PRODUCT USED FOR UNKNOWN INDICATION
     Dosage: UNK UNK, UNKNOWN FREQ.
     Route: 065
  2. PROGRAF [Suspect]
     Active Substance: TACROLIMUS\TACROLIMUS ANHYDROUS
     Indication: LUNG TRANSPLANT
     Dosage: 1 MCG/KG/HOUR INCREASED TO 150 MCG/HOUR
     Route: 041

REACTIONS (3)
  - Off label use [Unknown]
  - Drug ineffective [Unknown]
  - Immunosuppressant drug level decreased [Recovering/Resolving]
